FAERS Safety Report 17040296 (Version 1)
Quarter: 2019Q4

REPORT INFORMATION
  Report Type: Spontaneous
  Country: US (occurrence: US)
  Receive Date: 20191117
  Receipt Date: 20191117
  Transmission Date: 20200122
  Serious: No
  Sender: FDA-Public Use
  Company Number: US-TORRENT-00007381

PATIENT
  Sex: Female
  Weight: 90 kg

DRUGS (8)
  1. METFORMIN [Concomitant]
     Active Substance: METFORMIN HYDROCHLORIDE
     Indication: DIABETES MELLITUS
     Dosage: AT SUPPER (DURING NIGHT)
     Route: 048
  2. GLIPIZIDE. [Concomitant]
     Active Substance: GLIPIZIDE
     Indication: DIABETES MELLITUS
     Dosage: 1 IN THE MORNING, 1 AT SUPPER (DURING NIGHT) WITH METFORMIN
     Route: 048
  3. EYLEA SHOTS [Concomitant]
     Indication: MACULAR DEGENERATION
     Dosage: 1 SHOT, EVERY 6-8 WEEKS
  4. TRAZODONE [Concomitant]
     Active Substance: TRAZODONE HYDROCHLORIDE
     Indication: SLEEP DISORDER
     Dosage: FREQUENCY TEXT: HS
     Route: 048
  5. LOSARTAN. [Suspect]
     Active Substance: LOSARTAN
     Indication: BLOOD PRESSURE MEASUREMENT
     Dosage: 1 TIMES PER DAY
     Route: 048
  6. AMLODIPINE [Concomitant]
     Active Substance: AMLODIPINE BESYLATE
     Indication: BLOOD PRESSURE MEASUREMENT
     Dosage: 1 TIME PER DAY
     Route: 048
  7. CLONAZEPAM. [Concomitant]
     Active Substance: CLONAZEPAM
     Indication: ANXIETY
     Dosage: 1 TABLET OF 1 MG HALF HOUR BEFORE TRAZODONE; CAN ALSO TAKE 1 MG AS NEEDED DURING THE DAY
     Route: 048
  8. LEVETHROXIN SODIUM [Concomitant]
     Indication: THYROID DISORDER
     Dosage: HALF AN HOUR BEFORE BREAKFAST
     Route: 048

REACTIONS (2)
  - Nausea [Not Recovered/Not Resolved]
  - Therapy cessation [Unknown]

NARRATIVE: CASE EVENT DATE: 20181224
